FAERS Safety Report 19391757 (Version 1)
Quarter: 2021Q2

REPORT INFORMATION
  Report Type: Spontaneous
  Country: TR (occurrence: TR)
  Receive Date: 20210608
  Receipt Date: 20210608
  Transmission Date: 20210717
  Serious: Yes (Hospitalization)
  Sender: FDA-Public Use
  Company Number: TR-ARBOR PHARMACEUTICALS, LLC-TR-2021ARB000631

PATIENT
  Age: 65 Year
  Sex: Female

DRUGS (1)
  1. GABAPENTIN ENACARBIL [Suspect]
     Active Substance: GABAPENTIN ENACARBIL
     Indication: NEURALGIA
     Dosage: 75 MG, QD
     Route: 065

REACTIONS (1)
  - Fixed eruption [Recovered/Resolved]
